FAERS Safety Report 10220076 (Version 1)
Quarter: 2014Q1

REPORT INFORMATION
  Report Type: Spontaneous
  Country: US (occurrence: None)
  Receive Date: 20140306
  Receipt Date: 20140306
  Transmission Date: 20141002
  Serious: Yes (Other)
  Sender: FDA-Public Use
  Company Number: 163-21880-13054264

PATIENT
  Age: 57 Year
  Sex: Male
  Weight: 99.34 kg

DRUGS (6)
  1. REVLIMID (LENALIDOMIDE) (25 MILLIGRAM, CAPSULES) [Suspect]
     Indication: PLASMA CELL MYELOMA
     Route: 048
     Dates: start: 201202, end: 2012
  2. DEXAMETHASONE (DEXAMETHASONE) [Concomitant]
  3. LORAZEPAM (LORAZEPAM) [Concomitant]
  4. HYDROCODONE-ACETAMINOPHEN (VICODIN) [Concomitant]
  5. VITAMIN D (ERGOCALCIFEROL) [Concomitant]
  6. MULTIVITAMINS (MULTIVITAMINS) [Concomitant]

REACTIONS (1)
  - Loss of consciousness [None]
